FAERS Safety Report 9712087 (Version 1)
Quarter: 2013Q4

REPORT INFORMATION
  Report Type: Spontaneous
  Country: US (occurrence: None)
  Receive Date: 20131122
  Receipt Date: 20131122
  Transmission Date: 20140711
  Serious: Yes (Death)
  Sender: FDA-Public Use
  Company Number: DEP_01274_2013

PATIENT
  Age: 53 Year
  Sex: Female

DRUGS (7)
  1. LAZANDA [Suspect]
     Indication: RECTAL CANCER
     Dosage: (100 MCG/  ONCE OR TWICE A DAY/ NASAL)
     Route: 045
  2. DILAUDID [Concomitant]
  3. ADDERALL [Concomitant]
  4. WELLBUTRIN [Concomitant]
  5. LORAZEPAM [Concomitant]
  6. OXYCONTIN [Concomitant]
  7. ZANAFLEX [Concomitant]

REACTIONS (1)
  - Death [None]
